FAERS Safety Report 23778014 (Version 1)
Quarter: 2024Q2

REPORT INFORMATION
  Report Type: Spontaneous
  Country: ZA (occurrence: ZA)
  Receive Date: 20240424
  Receipt Date: 20240424
  Transmission Date: 20240715
  Serious: Yes (Hospitalization)
  Sender: FDA-Public Use
  Company Number: ZA-SA-SAC20240422001144

PATIENT
  Sex: Male
  Weight: 3.5 kg

DRUGS (1)
  1. APIDRA [Suspect]
     Active Substance: INSULIN GLULISINE
     Indication: Diabetes mellitus
     Dosage: 2 U, TID (BS-2 UNITS | BL-2 UNITS I BB-2 UNITS)
     Route: 064
     Dates: start: 20240311

REACTIONS (2)
  - Blood sodium decreased [Unknown]
  - Foetal exposure during pregnancy [Unknown]
